FAERS Safety Report 5143016-2 (Version None)
Quarter: 2006Q4

REPORT INFORMATION
  Report Type: 
  Country: None (occurrence: None)
  Receive Date: 20061031
  Receipt Date: 20061031
  Transmission Date: 20070319
  Serious: Yes (Death)
  Sender: FDA-Public Use
  Company Number: None

PATIENT
  Age: 73 Year
  Sex: Male
  Weight: 100.2449 kg

DRUGS (5)
  1. HEPARIN [Suspect]
     Indication: ANTICOAGULANT THERAPY
     Dosage: IV INTRAOPERATIVELY
     Route: 042
     Dates: start: 20060412
  2. ALLOPURINOL [Concomitant]
  3. PAROXETINE HCL [Concomitant]
  4. IPRATROPIUM BROMIDE [Concomitant]
  5. ALBUTEROL [Concomitant]

REACTIONS (12)
  - CYANOSIS [None]
  - DEPRESSED LEVEL OF CONSCIOUSNESS [None]
  - GANGRENE [None]
  - HEPARIN-INDUCED THROMBOCYTOPENIA [None]
  - HEPATIC FAILURE [None]
  - HYPOPERFUSION [None]
  - LOSS OF CONSCIOUSNESS [None]
  - METABOLIC ENCEPHALOPATHY [None]
  - POST PROCEDURAL COMPLICATION [None]
  - RENAL FAILURE [None]
  - SEPSIS [None]
  - SHOCK [None]
